FAERS Safety Report 13407338 (Version 1)
Quarter: 2017Q2

REPORT INFORMATION
  Report Type: Spontaneous
  Country: US (occurrence: US)
  Receive Date: 20170405
  Receipt Date: 20170405
  Transmission Date: 20170830
  Serious: Yes (Hospitalization)
  Sender: FDA-Public Use
  Company Number: US-BEH-2017079333

PATIENT
  Age: 71 Year
  Sex: Male
  Weight: 81.63 kg

DRUGS (31)
  1. HIZENTRA [Suspect]
     Active Substance: HUMAN IMMUNOGLOBULIN G
     Dosage: UNK
     Route: 058
  2. HIZENTRA [Suspect]
     Active Substance: HUMAN IMMUNOGLOBULIN G
     Dosage: UNK
     Route: 058
  3. LIDOCAINE/PRILOCAINE [Concomitant]
     Active Substance: LIDOCAINE\PRILOCAINE
  4. RIBOFLAVIN [Concomitant]
     Active Substance: RIBOFLAVIN
  5. LAMOTRIGINE. [Concomitant]
     Active Substance: LAMOTRIGINE
  6. HIZENTRA [Suspect]
     Active Substance: HUMAN IMMUNOGLOBULIN G
     Dosage: UNK
     Route: 058
  7. ACETAMINOPHEN. [Concomitant]
     Active Substance: ACETAMINOPHEN
  8. SINGULAIR [Concomitant]
     Active Substance: MONTELUKAST SODIUM
  9. KEPPRA [Concomitant]
     Active Substance: LEVETIRACETAM
  10. HIZENTRA [Suspect]
     Active Substance: HUMAN IMMUNOGLOBULIN G
     Indication: PRODUCT USED FOR UNKNOWN INDICATION
     Dosage: 11 G, QW
     Route: 058
     Dates: start: 20120822
  11. TAMSULOSIN [Concomitant]
     Active Substance: TAMSULOSIN
  12. LORAZEPAM. [Concomitant]
     Active Substance: LORAZEPAM
  13. MULTIVITAMINS [Concomitant]
     Active Substance: VITAMINS
  14. SIMVASTATIN. [Concomitant]
     Active Substance: SIMVASTATIN
  15. SYMBICORT [Concomitant]
     Active Substance: BUDESONIDE\FORMOTEROL FUMARATE DIHYDRATE
  16. VITAMIN D                          /00107901/ [Concomitant]
     Active Substance: ERGOCALCIFEROL
  17. DIPHENHYDRAMINE. [Concomitant]
     Active Substance: DIPHENHYDRAMINE
  18. LMX                                /00033401/ [Concomitant]
  19. ASPIRIN. [Concomitant]
     Active Substance: ASPIRIN
  20. LEVETIRACETAM. [Concomitant]
     Active Substance: LEVETIRACETAM
  21. SPIRIVA [Concomitant]
     Active Substance: TIOTROPIUM BROMIDE MONOHYDRATE
  22. EPIPEN [Concomitant]
     Active Substance: EPINEPHRINE
  23. BUDESONIDE. [Concomitant]
     Active Substance: BUDESONIDE
  24. VITAMINS WITH MINERALS [Concomitant]
     Active Substance: MINERALS\VITAMINS
  25. LISINOPRIL. [Concomitant]
     Active Substance: LISINOPRIL
  26. ROPINIROLE. [Concomitant]
     Active Substance: ROPINIROLE
  27. PROVENTIL [Concomitant]
     Active Substance: ALBUTEROL
  28. OMEPRAZOLE. [Concomitant]
     Active Substance: OMEPRAZOLE
  29. ZYRTEC [Concomitant]
     Active Substance: CETIRIZINE HYDROCHLORIDE
  30. ALBUTEROL                          /00139501/ [Concomitant]
     Active Substance: ALBUTEROL
  31. VITAMIN B12 [Concomitant]
     Active Substance: CYANOCOBALAMIN

REACTIONS (1)
  - Seizure [Unknown]

NARRATIVE: CASE EVENT DATE: 20170321
